FAERS Safety Report 5036539-8 (Version None)
Quarter: 2006Q2

REPORT INFORMATION
  Report Type: 
  Country: None (occurrence: None)
  Receive Date: 20060613
  Receipt Date: 20050826
  Transmission Date: 20061013
  Serious: Yes (Hospitalization)
  Sender: FDA-Public Use
  Company Number: US-JNJFOC-20050806823

PATIENT
  Age: 28 Year
  Sex: Male

DRUGS (3)
  1. HALDOL DECANOATE (HALOPERIDOL DECANOATE) INJECTION [Suspect]
     Indication: SCHIZOPHRENIA
     Dosage: 200 MG, 1 IN 3 WEEK, INTRA-MUSCULAR
     Route: 030
     Dates: start: 20000101
  2. RISPERDAL CONSTA [Suspect]
     Indication: SCHIZOPHRENIA
     Dosage: 50 MG, 1 IN 2 WEEK, INTRA-MUSCULAR
     Route: 030
     Dates: start: 20040101, end: 20050101
  3. INSULIN [Concomitant]

REACTIONS (2)
  - HALLUCINATION [None]
  - THERAPEUTIC RESPONSE DECREASED [None]
